FAERS Safety Report 8346331-4 (Version None)
Quarter: 2012Q2

REPORT INFORMATION
  Report Type: 
  Country: None (occurrence: None)
  Receive Date: 20120509
  Receipt Date: 20120502
  Transmission Date: 20120825
  Serious: Yes (Other)
  Sender: FDA-Public Use
  Company Number: BR-PFIZER INC-2012107935

PATIENT
  Age: 76 Year
  Sex: Female

DRUGS (6)
  1. XALATAN [Suspect]
     Indication: CATARACT
  2. EUTHYROX [Concomitant]
     Indication: THYROID DISORDER
     Dosage: UNK
     Dates: start: 20070101
  3. XALATAN [Suspect]
     Indication: GLAUCOMA
     Dosage: 3 UG (TWO DROPS), 1X/DAY
     Route: 047
     Dates: start: 20080501
  4. HALDOL [Concomitant]
     Indication: DEPRESSION
     Dosage: UNK
     Dates: start: 20020101
  5. PHENERGAN [Concomitant]
     Indication: HYPERSENSITIVITY
     Dosage: UNK
     Dates: start: 20020101
  6. NEOZINE [Concomitant]
     Indication: DEPRESSION
     Dosage: UNK
     Dates: start: 20020101

REACTIONS (1)
  - DEMENTIA ALZHEIMER'S TYPE [None]
